FAERS Safety Report 4719029-9 (Version None)
Quarter: 2005Q3

REPORT INFORMATION
  Report Type: 
  Country: None (occurrence: None)
  Receive Date: 20050720
  Receipt Date: 20050704
  Transmission Date: 20060218
  Serious: Yes (Other)
  Sender: FDA-Public Use
  Company Number: 2005086906

PATIENT
  Age: 25 Year
  Sex: Male

DRUGS (2)
  1. VIAGRA [Suspect]
     Indication: ERECTILE DYSFUNCTION
     Dosage: 25 MG (25 MG, AS NECESSARY), ORAL
     Route: 048
     Dates: start: 20040101, end: 20050605
  2. XALATAN [Suspect]
     Indication: ILL-DEFINED DISORDER
     Dates: end: 20050605

REACTIONS (4)
  - EYE PAIN [None]
  - OCULAR DISCOMFORT [None]
  - OCULAR HYPERAEMIA [None]
  - OCULAR VASCULAR DISORDER [None]
